FAERS Safety Report 11812319 (Version 2)
Quarter: 2015Q4

REPORT INFORMATION
  Report Type: Spontaneous
  Country: BR (occurrence: BR)
  Receive Date: 20151208
  Receipt Date: 20151215
  Transmission Date: 20160305
  Serious: Yes (Other)
  Sender: FDA-Public Use
  Company Number: BR-PFIZER INC-2015391270

PATIENT
  Age: 74 Year
  Sex: Female
  Weight: 55 kg

DRUGS (11)
  1. MICOSTATIN [Concomitant]
     Dosage: UNK
  2. SLOW K [Concomitant]
     Active Substance: POTASSIUM CHLORIDE
     Dosage: 600 MG, UNK
  3. OSCAL /07357001/ [Concomitant]
     Dosage: 500 MG, UNK
  4. LOSEC [Concomitant]
     Active Substance: OMEPRAZOLE
     Dosage: 40 MG, UNK
  5. SANDOSTATIN [Concomitant]
     Active Substance: OCTREOTIDE ACETATE
     Dosage: 0.1 MG/ML PER AMPOULE, UNK
  6. SYNTHROID [Concomitant]
     Active Substance: LEVOTHYROXINE SODIUM
     Dosage: 25 UG, UNK
  7. SYLADOR [Concomitant]
     Dosage: 50 MG/ML, UNK
  8. NOVALGIN [Concomitant]
     Active Substance: METAMIZOLE SODIUM
     Dosage: 1000 MG/2ML, UNK
  9. ANSENTRON [Concomitant]
     Dosage: 8 MG/4ML, UNK
  10. UNASYN [Suspect]
     Active Substance: AMPICILLIN SODIUM\SULBACTAM SODIUM
     Indication: INFECTION
     Dosage: 500 MG SULBACTAM SODIUM + 1000 MG AMPICILLIN SODIUM, 6/6 HOURS
     Route: 041
     Dates: start: 20151010, end: 20151015
  11. EPHYNAL /00110502/ [Concomitant]
     Dosage: 400 MG, UNK

REACTIONS (1)
  - Hyperaemia [Recovered/Resolved]

NARRATIVE: CASE EVENT DATE: 20151010
